FAERS Safety Report 9153224 (Version 2)
Quarter: 2013Q1

REPORT INFORMATION
  Report Type: Spontaneous
  Country: US (occurrence: US)
  Receive Date: 20130311
  Receipt Date: 20130313
  Transmission Date: 20140127
  Serious: Yes (Congenital Anomaly)
  Sender: FDA-Public Use
  Company Number: US-009507513-1303USA002098

PATIENT
  Sex: Female
  Weight: 2.89 kg

DRUGS (2)
  1. ISENTRESS [Suspect]
     Dosage: 800 MG, QD
     Route: 064
  2. TRUVADA [Suspect]
     Dosage: 1 DF(TAB/CAPSULE), UNK
     Route: 064

REACTIONS (2)
  - Congenital anomaly [Unknown]
  - Foetal exposure during pregnancy [Recovered/Resolved]
